FAERS Safety Report 8472282-0 (Version None)
Quarter: 2012Q2

REPORT INFORMATION
  Report Type: 
  Country: None (occurrence: None)
  Receive Date: 20120622
  Receipt Date: 20120622
  Transmission Date: 20120825
  Serious: Yes (Other)
  Sender: FDA-Public Use
  Company Number: None

PATIENT
  Sex: Male

DRUGS (10)
  1. LYRICA [Concomitant]
  2. CLONOPIN [Concomitant]
  3. BIRISPAN [Concomitant]
  4. PROXIN [Concomitant]
  5. HYDROCODONE BITARTRATE [Concomitant]
  6. PAXIL [Suspect]
     Indication: DEPRESSION
     Dosage: 40MG ONCE A DAY PO
     Route: 048
  7. TRAMADOL HCL [Suspect]
     Indication: DEPRESSION
     Dosage: 50MG ONCE A DAY PO
     Route: 048
  8. CYMBALTA [Concomitant]
  9. GAVAPENTIN [Concomitant]
  10. METHOCARBAMOL [Concomitant]

REACTIONS (8)
  - ABNORMAL DREAMS [None]
  - PANIC ATTACK [None]
  - RESTLESS LEGS SYNDROME [None]
  - SKIN EXFOLIATION [None]
  - PRURITUS [None]
  - AMNESIA [None]
  - CHEST PAIN [None]
  - SUICIDAL IDEATION [None]
